FAERS Safety Report 7762123-9 (Version None)
Quarter: 2011Q3

REPORT INFORMATION
  Report Type: 
  Country: None (occurrence: None)
  Receive Date: 20110920
  Receipt Date: 20110916
  Transmission Date: 20111222
  Serious: Yes (Death, Life-Threatening)
  Sender: FDA-Public Use
  Company Number: ES-GENZYME-CLOF-1001610

PATIENT
  Sex: Female
  Weight: 65 kg

DRUGS (11)
  1. SCOPOLAMINE [Concomitant]
     Indication: MALAISE
     Dosage: 20 MG/ML, QD
     Route: 042
     Dates: start: 20110507, end: 20110508
  2. ACYCLOVIR [Concomitant]
     Indication: ANTIVIRAL TREATMENT
     Dosage: 300 MG, TID
     Route: 042
     Dates: start: 20110506, end: 20110512
  3. EVOLTRA [Suspect]
     Indication: ACUTE MYELOID LEUKAEMIA
     Dosage: 33 MG, QD
     Route: 042
     Dates: start: 20110413, end: 20110417
  4. FUROSEMIDE [Concomitant]
     Indication: DIURETIC THERAPY
     Dosage: 250 MG, QD
     Route: 042
     Dates: start: 20110415
  5. ENALAPRIL MALEATE [Concomitant]
     Indication: HYPERTENSION
     Dosage: 10 MG AM, 5 MG PM
     Route: 048
     Dates: start: 20110412
  6. MEROPENEM [Concomitant]
     Indication: ANTI-INFECTIVE THERAPY
     Dosage: 1 G, TID
     Route: 042
     Dates: start: 20110425, end: 20110509
  7. CYTARABINE [Suspect]
     Indication: ACUTE MYELOID LEUKAEMIA
     Dosage: 33 MG, QD
     Route: 042
     Dates: start: 20110413, end: 20110426
  8. CHLORHEXIDINE GLUCONATE [Concomitant]
     Indication: INFECTION PROPHYLAXIS
     Dosage: MOUTHWASH TID
     Route: 048
     Dates: start: 20110430, end: 20110514
  9. PANTOPRAZOLE [Concomitant]
     Indication: PROPHYLAXIS
     Dosage: 40 MG, QD
     Route: 042
     Dates: start: 20110415
  10. MYCOSTATIN [Concomitant]
     Indication: ANTIFUNGAL PROPHYLAXIS
     Dosage: MOUTHWASH TID
     Route: 048
     Dates: start: 20110430, end: 20110510
  11. METOCLOPRAMIDE [Concomitant]
     Indication: MALAISE
     Dosage: 10 MG, TID
     Route: 042
     Dates: start: 20110423, end: 20110508

REACTIONS (3)
  - DEATH [None]
  - NEUTROPENIA [None]
  - BACTERAEMIA [None]
